FAERS Safety Report 5936078-3 (Version None)
Quarter: 2008Q4

REPORT INFORMATION
  Report Type: 
  Country: None (occurrence: None)
  Receive Date: 20081030
  Receipt Date: 20081022
  Transmission Date: 20090506
  Serious: Yes (Life-Threatening)
  Sender: FDA-Public Use
  Company Number: IE-PFIZER INC-2008049923

PATIENT
  Sex: Male
  Weight: 69.9 kg

DRUGS (5)
  1. GENOTROPIN [Suspect]
     Indication: GROWTH HORMONE DEFICIENCY
     Route: 058
     Dates: start: 20030220, end: 20070401
  2. ELTROXIN [Concomitant]
     Indication: HYPOTHYROIDISM
     Dosage: DAILY DOSE:100MCG-FREQ:DAILY
     Route: 048
     Dates: start: 20041001
  3. ELTROXIN [Concomitant]
     Dosage: DAILY DOSE:200MCG-FREQ:DAILY
     Dates: start: 20071216
  4. SUSTANON [Concomitant]
     Route: 030
     Dates: start: 20061001
  5. TESTOSTERONE [Concomitant]
     Dates: start: 20071201

REACTIONS (1)
  - THYROID CANCER [None]
